FAERS Safety Report 11847286 (Version 1)
Quarter: 2015Q4

REPORT INFORMATION
  Report Type: Spontaneous
  Country: US (occurrence: US)
  Receive Date: 20151217
  Receipt Date: 20151217
  Transmission Date: 20160305
  Serious: No
  Sender: FDA-Public Use
  Company Number: US-ROCHE-1585390

PATIENT
  Age: 30 Year
  Sex: Female

DRUGS (1)
  1. TAMIFLU [Suspect]
     Active Substance: OSELTAMIVIR PHOSPHATE
     Indication: NASOPHARYNGITIS
     Route: 065

REACTIONS (4)
  - Anxiety [Unknown]
  - Thinking abnormal [Unknown]
  - Dyspnoea [Unknown]
  - Chest pain [Unknown]
